FAERS Safety Report 4271852-3 (Version None)
Quarter: 2004Q1

REPORT INFORMATION
  Report Type: 
  Country: None (occurrence: None)
  Receive Date: 20040115
  Receipt Date: 20040105
  Transmission Date: 20041129
  Serious: Yes (Other)
  Sender: FDA-Public Use
  Company Number: WAES 0401USA00086B1

PATIENT
  Sex: Male
  Weight: 1 kg

DRUGS (3)
  1. [THERAPY UNSPECIFIED] [Concomitant]
  2. ENBREL [Concomitant]
     Indication: RHEUMATOID ARTHRITIS
  3. VIOXX [Suspect]
     Indication: RHEUMATOID ARTHRITIS

REACTIONS (10)
  - ACTIVITIES OF DAILY LIVING IMPAIRED [None]
  - COMPLICATIONS OF MATERNAL EXPOSURE TO THERAPEUTIC DRUGS [None]
  - FEELING ABNORMAL [None]
  - INFERTILITY [None]
  - JOINT SWELLING [None]
  - OLIGOHYDRAMNIOS [None]
  - PREGNANCY [None]
  - PREMATURE BABY [None]
  - SMALL FOR DATES BABY [None]
  - STRESS SYMPTOMS [None]
